FAERS Safety Report 7989254-2 (Version None)
Quarter: 2011Q4

REPORT INFORMATION
  Report Type: 
  Country: None (occurrence: None)
  Receive Date: 20111216
  Receipt Date: 20111216
  Transmission Date: 20120403
  Serious: No
  Sender: FDA-Public Use
  Company Number: None

PATIENT
  Sex: Female
  Weight: 106.59 kg

DRUGS (7)
  1. AMPYRA [Suspect]
     Indication: MULTIPLE SCLEROSIS
     Dosage: 10MG EVERY 12 HOURS ORALLY
     Route: 048
     Dates: start: 20100801, end: 20110901
  2. SIMVASTATIN [Concomitant]
  3. REBIF [Concomitant]
  4. ASPIRIN [Concomitant]
  5. LISINOPRIL [Concomitant]
  6. HYDROCHLOROTHIAZIDE [Concomitant]
  7. OXYBUTYNIN [Concomitant]

REACTIONS (1)
  - DRUG INEFFECTIVE [None]
